FAERS Safety Report 6209431-0 (Version None)
Quarter: 2009Q2

REPORT INFORMATION
  Report Type: 
  Country: None (occurrence: None)
  Receive Date: 20090601
  Receipt Date: 20090520
  Transmission Date: 20091009
  Serious: Yes (Hospitalization)
  Sender: FDA-Public Use
  Company Number: GB-ROCHE-634056

PATIENT
  Sex: Female
  Weight: 101.6 kg

DRUGS (1)
  1. ORLISTAT [Suspect]
     Indication: OBESITY
     Route: 048
     Dates: start: 20081014

REACTIONS (3)
  - INTERNAL INJURY [None]
  - ROAD TRAFFIC ACCIDENT [None]
  - THROMBOSIS [None]
